FAERS Safety Report 7361225-9 (Version None)
Quarter: 2011Q1

REPORT INFORMATION
  Report Type: 
  Country: None (occurrence: None)
  Receive Date: 20110318
  Receipt Date: 20110223
  Transmission Date: 20110831
  Serious: No
  Sender: FDA-Public Use
  Company Number: US-BAYER-2011-020551

PATIENT

DRUGS (1)
  1. ALEVE (CAPLET) [Suspect]
     Indication: HEADACHE
     Dosage: 2 WKS
     Route: 048
     Dates: start: 20100101

REACTIONS (2)
  - NO ADVERSE EVENT [None]
  - GASTRIC DISORDER [None]
